FAERS Safety Report 9894786 (Version 1)
Quarter: 2014Q1

REPORT INFORMATION
  Report Type: Spontaneous
  Country: TR (occurrence: TR)
  Receive Date: 20140213
  Receipt Date: 20140213
  Transmission Date: 20141002
  Serious: Yes (Hospitalization)
  Sender: FDA-Public Use
  Company Number: PHHY2014TR016720

PATIENT
  Age: 49 Year
  Sex: Female

DRUGS (2)
  1. 5-FLUOROURACIL [Suspect]
     Indication: GASTRIC CANCER
  2. FOLINIC ACID [Suspect]
     Indication: GASTRIC CANCER

REACTIONS (9)
  - Acute myeloid leukaemia [Unknown]
  - Anaemia [Unknown]
  - Leukopenia [Unknown]
  - Thrombocytopenia [Unknown]
  - Dysphagia [Unknown]
  - Gingival hypertrophy [Unknown]
  - Hepatosplenomegaly [Unknown]
  - Tonsillar hypertrophy [Unknown]
  - Splenomegaly [Unknown]
